FAERS Safety Report 20327868 (Version 1)
Quarter: 2022Q1

REPORT INFORMATION
  Report Type: Spontaneous
  Country: US (occurrence: None)
  Receive Date: 20220112
  Receipt Date: 20220112
  Transmission Date: 20220424
  Serious: Yes (Death)
  Sender: FDA-Public Use
  Company Number: None

PATIENT
  Age: 92 Year
  Sex: Female

DRUGS (1)
  1. SYNVISC-ONE [Suspect]
     Active Substance: HYLAN G-F 20
     Route: 058
     Dates: start: 20210722

REACTIONS (1)
  - Death [None]

NARRATIVE: CASE EVENT DATE: 20220112
